FAERS Safety Report 5693157-6 (Version None)
Quarter: 2008Q2

REPORT INFORMATION
  Report Type: 
  Country: None (occurrence: None)
  Receive Date: 20080402
  Receipt Date: 20080402
  Transmission Date: 20081010
  Serious: Yes (Life-Threatening)
  Sender: FDA-Public Use
  Company Number: None

PATIENT
  Age: 77 Year
  Sex: Female
  Weight: 70.5 kg

DRUGS (25)
  1. INDAPAMIDE [Suspect]
     Indication: OEDEMA
     Dosage: DAILY PO
     Route: 048
     Dates: start: 20080304, end: 20080319
  2. ASPIRIN [Concomitant]
  3. METOPROLOL TARTRATE [Concomitant]
  4. CARVEDILOL [Concomitant]
  5. CEPHALEXIN [Concomitant]
  6. ROSUVASTATIN [Concomitant]
  7. LISINOPRIL [Concomitant]
  8. FENOPROFEN CALCIUM [Concomitant]
  9. NAPROXEN [Concomitant]
  10. SULINDAC [Concomitant]
  11. PIROXICAM [Concomitant]
  12. IBUPROFEN [Concomitant]
  13. INDOMETHACIN [Concomitant]
  14. VYTORIN [Concomitant]
  15. ATORVASTATIN [Concomitant]
  16. CLINDAMYCIN HCL [Concomitant]
  17. ENOXAPARIN SODIUM [Concomitant]
  18. ESOMPRAZOLE [Concomitant]
  19. OMEPRAZOLE [Concomitant]
  20. LEVOFLOXACIN [Concomitant]
  21. PHENYTOIN [Concomitant]
  22. QUETIAPINE FUMARATE [Concomitant]
  23. VALSARTAN [Concomitant]
  24. WARFARIN SODIUM [Concomitant]
  25. MULTI-VITAMIN [Concomitant]

REACTIONS (8)
  - CONFUSIONAL STATE [None]
  - ENCEPHALOPATHY [None]
  - HYPONATRAEMIA [None]
  - MYOCARDIAL INFARCTION [None]
  - NAUSEA [None]
  - RESPIRATORY FAILURE [None]
  - UNRESPONSIVE TO STIMULI [None]
  - VOMITING [None]
